FAERS Safety Report 7285568-2 (Version None)
Quarter: 2011Q1

REPORT INFORMATION
  Report Type: 
  Country: None (occurrence: None)
  Receive Date: 20110125
  Receipt Date: 20110110
  Transmission Date: 20110831
  Serious: Yes (Death)
  Sender: FDA-Public Use
  Company Number: 025545

PATIENT
  Age: 44 Year
  Sex: Female

DRUGS (4)
  1. ETHANOL [Suspect]
  2. ALPRAZOLAM [Suspect]
  3. FLUOXETINE [Suspect]
  4. ACETAMINOPHEN [Suspect]

REACTIONS (1)
  - DEATH [None]
